FAERS Safety Report 4393920-8 (Version None)
Quarter: 2004Q3

REPORT INFORMATION
  Report Type: 
  Country: None (occurrence: None)
  Receive Date: 20040702
  Receipt Date: 20040516
  Transmission Date: 20050211
  Serious: Yes (Hospitalization)
  Sender: FDA-Public Use
  Company Number: VIS10153.2001

PATIENT
  Age: 76 Year
  Sex: Male
  Weight: 69.8539 kg

DRUGS (12)
  1. VISICOL [Suspect]
     Indication: COLONOSCOPY
     Dosage: 42 G ONCE PO
     Route: 048
     Dates: start: 20040505, end: 20040505
  2. DULCOLAX [Suspect]
     Indication: COLONOSCOPY
     Dosage: 10 MG NA PO
     Route: 048
     Dates: start: 20040505, end: 20040505
  3. CALAN [Concomitant]
  4. CARAFATE [Concomitant]
  5. K-DUR 10 [Concomitant]
  6. PRAVACHOL [Concomitant]
  7. HYTRIN [Concomitant]
  8. METOPROLOL [Concomitant]
  9. ASACOL [Concomitant]
  10. PAXIL [Concomitant]
  11. IRON SUPPLIMENT [Concomitant]
  12. FLOMAX [Concomitant]

REACTIONS (7)
  - ASTHENIA [None]
  - MALAISE [None]
  - NAUSEA [None]
  - NECK PAIN [None]
  - PAIN IN EXTREMITY [None]
  - RENAL FAILURE [None]
  - VOMITING [None]
